FAERS Safety Report 6790842-X (Version None)
Quarter: 2010Q2

REPORT INFORMATION
  Report Type: 
  Country: None (occurrence: None)
  Receive Date: 20100624
  Receipt Date: 20100614
  Transmission Date: 20101027
  Serious: Yes (Death)
  Sender: FDA-Public Use
  Company Number: A0865273A

PATIENT
  Age: 59 Year
  Sex: Female

DRUGS (2)
  1. ARIXTRA [Suspect]
     Dosage: 2.5ML SINGLE DOSE
     Route: 058
     Dates: start: 20100101, end: 20100101
  2. UNKNOWN [Concomitant]

REACTIONS (2)
  - DRUG ADMINISTRATION ERROR [None]
  - POST PROCEDURAL HAEMORRHAGE [None]
